FAERS Safety Report 11760826 (Version 1)
Quarter: 2015Q4

REPORT INFORMATION
  Report Type: Spontaneous
  Country: US (occurrence: US)
  Receive Date: 20151120
  Receipt Date: 20151120
  Transmission Date: 20160304
  Serious: No
  Sender: FDA-Public Use
  Company Number: US-ELI_LILLY_AND_COMPANY-US201211009501

PATIENT
  Age: 83 Year
  Sex: Female

DRUGS (1)
  1. FORTEO [Suspect]
     Active Substance: TERIPARATIDE
     Indication: OSTEOPOROSIS
     Dosage: 20 UG, QD

REACTIONS (9)
  - Mobility decreased [Unknown]
  - Back disorder [Unknown]
  - Arthralgia [Unknown]
  - Pain [Unknown]
  - Local swelling [Recovered/Resolved]
  - Pain in extremity [Unknown]
  - Arthropathy [Unknown]
  - Rash generalised [Unknown]
  - Gait disturbance [Unknown]
